FAERS Safety Report 18023092 (Version 2)
Quarter: 2020Q3

REPORT INFORMATION
  Report Type: Spontaneous
  Country: US (occurrence: US)
  Receive Date: 20200715
  Receipt Date: 20200721
  Transmission Date: 20201103
  Serious: Yes (Other)
  Sender: FDA-Public Use
  Company Number: US-ROCHE-2637273

PATIENT
  Sex: Female
  Weight: 49.94 kg

DRUGS (12)
  1. BACLOFEN. [Concomitant]
     Active Substance: BACLOFEN
     Indication: MUSCLE SPASMS
     Route: 048
  2. KLONOPIN [Suspect]
     Active Substance: CLONAZEPAM
     Indication: SLEEP DISORDER
     Dosage: TAKES 1MG IN MORNING, AND 2MG AT BEDTIME
     Route: 048
     Dates: start: 2010
  3. TAMOXIFEN [Concomitant]
     Active Substance: TAMOXIFEN
     Indication: BREAST HYPERPLASIA
     Route: 048
  4. ALEVE [Concomitant]
     Active Substance: NAPROXEN SODIUM
     Indication: PAIN IN EXTREMITY
  5. OCREVUS [Suspect]
     Active Substance: OCRELIZUMAB
     Indication: SECONDARY PROGRESSIVE MULTIPLE SCLEROSIS
     Route: 042
     Dates: start: 2017
  6. ALEVE [Concomitant]
     Active Substance: NAPROXEN SODIUM
     Indication: BACK PAIN
     Dosage: 400 TO 600MG TAKEN PER DOSE ;ONGOING: YES
     Route: 048
  7. MAGNESIUM [Concomitant]
     Active Substance: MAGNESIUM
     Route: 048
  8. ADVIL [Concomitant]
     Active Substance: IBUPROFEN
     Indication: PAIN IN EXTREMITY
  9. BACLOFEN. [Concomitant]
     Active Substance: BACLOFEN
     Indication: BONE PAIN
  10. TRAZODONE [Concomitant]
     Active Substance: TRAZODONE HYDROCHLORIDE
     Indication: SLEEP DISORDER
     Route: 048
     Dates: start: 2010
  11. BACLOFEN. [Concomitant]
     Active Substance: BACLOFEN
     Indication: MUSCLE SPASMS
  12. ADVIL [Concomitant]
     Active Substance: IBUPROFEN
     Indication: BACK PAIN
     Dosage: 400 TO 600MG TAKEN PER DOSE ;ONGOING: YES
     Route: 048

REACTIONS (15)
  - Cognitive disorder [Not Recovered/Not Resolved]
  - Gait disturbance [Not Recovered/Not Resolved]
  - Multiple sclerosis [Recovered/Resolved]
  - Intentional product use issue [Unknown]
  - Pain [Not Recovered/Not Resolved]
  - Fatigue [Not Recovered/Not Resolved]
  - Breast hyperplasia [Recovering/Resolving]
  - Functional gastrointestinal disorder [Not Recovered/Not Resolved]
  - Gastritis erosive [Not Recovered/Not Resolved]
  - Magnetic resonance imaging abnormal [Not Recovered/Not Resolved]
  - Large intestine polyp [Recovered/Resolved]
  - Urinary retention [Not Recovered/Not Resolved]
  - Memory impairment [Not Recovered/Not Resolved]
  - Dysphagia [Not Recovered/Not Resolved]
  - Off label use [Unknown]

NARRATIVE: CASE EVENT DATE: 2015
